FAERS Safety Report 4299573-1 (Version None)
Quarter: 2004Q1

REPORT INFORMATION
  Report Type: 
  Country: None (occurrence: None)
  Receive Date: 20040217
  Receipt Date: 20040217
  Transmission Date: 20041129
  Serious: Yes (Hospitalization)
  Sender: FDA-Public Use
  Company Number: None

PATIENT
  Age: 58 Year
  Sex: Female
  Weight: 80.2867 kg

DRUGS (6)
  1. PEG-INTRON [Suspect]
     Indication: HEPATITIS C
     Dosage: 255 MCGMS QW SQ
     Route: 058
  2. REBETOL [Suspect]
     Indication: HEPATIC CIRRHOSIS
     Dosage: 1000 MG PO QD (400 AM 100 PM)
     Route: 048
  3. HUMALOG [Concomitant]
  4. NORVASC [Concomitant]
  5. DIOVAN [Concomitant]
  6. URSO [Concomitant]

REACTIONS (4)
  - HEADACHE [None]
  - HYPOAESTHESIA [None]
  - SENSATION OF HEAVINESS [None]
  - VERTIGO [None]
